FAERS Safety Report 7829179-6 (Version None)
Quarter: 2011Q4

REPORT INFORMATION
  Report Type: 
  Country: None (occurrence: None)
  Receive Date: 20111020
  Receipt Date: 20100930
  Transmission Date: 20120403
  Serious: No
  Sender: FDA-Public Use
  Company Number: US-BAYER-201036066NA

PATIENT
  Sex: Female

DRUGS (1)
  1. ULTRAVIST 150 [Suspect]

REACTIONS (1)
  - NASAL CONGESTION [None]
